FAERS Safety Report 11170811 (Version 1)
Quarter: 2015Q2

REPORT INFORMATION
  Report Type: Spontaneous
  Country: US (occurrence: US)
  Receive Date: 20150608
  Receipt Date: 20150608
  Transmission Date: 20150821
  Serious: Yes (Life-Threatening, Hospitalization, Other)
  Sender: FDA-Public Use
  Company Number: US-GLAXOSMITHKLINE-US2015GSK063264

PATIENT
  Age: 58 Year
  Sex: Female
  Weight: 109 kg

DRUGS (26)
  1. FUROSEMIDE. [Suspect]
     Active Substance: FUROSEMIDE
     Indication: PRODUCT USED FOR UNKNOWN INDICATION
     Dosage: UNK, U
  2. KLONOPIN [Suspect]
     Active Substance: CLONAZEPAM
     Indication: PRODUCT USED FOR UNKNOWN INDICATION
     Dosage: 2.5 MG, BID
  3. ORPHENADRINE + PARACETAMOL [Suspect]
     Active Substance: ACETAMINOPHEN\ORPHENADRINE CITRATE
     Indication: PRODUCT USED FOR UNKNOWN INDICATION
     Dosage: UNK, U
  4. ATARAX [Suspect]
     Active Substance: HYDROXYZINE\HYDROXYZINE HYDROCHLORIDE
     Indication: TREMOR
     Dosage: 25 MG, PRN
  5. PANTOPRAZOLE [Suspect]
     Active Substance: PANTOPRAZOLE SODIUM
     Indication: PRODUCT USED FOR UNKNOWN INDICATION
     Dosage: UNK, U
     Route: 048
  6. MORPHINE SULFATE. [Suspect]
     Active Substance: MORPHINE SULFATE
     Indication: PAIN
     Dosage: UNK UNK, U
  7. DIOVAN [Suspect]
     Active Substance: VALSARTAN
     Indication: PRODUCT USED FOR UNKNOWN INDICATION
     Dosage: 320 MG, QD
     Route: 048
     Dates: end: 20110928
  8. PHENERGAN [Suspect]
     Active Substance: PROMETHAZINE HYDROCHLORIDE
     Dosage: 25 MG, PRN
     Route: 054
  9. IBUPROFEN. [Suspect]
     Active Substance: IBUPROFEN
     Indication: PRODUCT USED FOR UNKNOWN INDICATION
     Dosage: 200 MG, U
     Dates: end: 20110924
  10. MORPHINE SULFATE. [Suspect]
     Active Substance: MORPHINE SULFATE
     Dosage: 12.5 UG, QD
     Route: 037
  11. PHENERGAN [Suspect]
     Active Substance: PROMETHAZINE HYDROCHLORIDE
     Indication: PRODUCT USED FOR UNKNOWN INDICATION
     Dosage: 12.5 MG, PRN
  12. NORVASC [Suspect]
     Active Substance: AMLODIPINE BESYLATE
     Indication: PRODUCT USED FOR UNKNOWN INDICATION
     Dosage: 5 MG, QD
  13. METOCLOPRAMIDE HYDROCHLORIDE. [Suspect]
     Active Substance: METOCLOPRAMIDE HYDROCHLORIDE
     Indication: PRODUCT USED FOR UNKNOWN INDICATION
     Dosage: UNK, U
     Route: 042
  14. CLONAZEPAM. [Suspect]
     Active Substance: CLONAZEPAM
     Indication: PRODUCT USED FOR UNKNOWN INDICATION
     Dosage: 2 MG, QD
  15. ENOXAPARIN [Suspect]
     Active Substance: ENOXAPARIN
     Indication: PRODUCT USED FOR UNKNOWN INDICATION
     Dosage: UNK, U
     Route: 042
  16. MORPHINE SULFATE. [Suspect]
     Active Substance: MORPHINE SULFATE
     Dosage: 2 MG, PRN
     Route: 042
  17. MORPHINE SULFATE. [Suspect]
     Active Substance: MORPHINE SULFATE
     Dosage: UNK, U
     Route: 042
  18. NORVASC [Suspect]
     Active Substance: AMLODIPINE BESYLATE
     Dosage: 10 MG, QD
  19. PARACETAMOL [Suspect]
     Active Substance: ACETAMINOPHEN
     Indication: PRODUCT USED FOR UNKNOWN INDICATION
     Dosage: UNK, U
  20. COREG [Suspect]
     Active Substance: CARVEDILOL
     Indication: PRODUCT USED FOR UNKNOWN INDICATION
     Dosage: 25 MG, BID
     Route: 048
     Dates: end: 20110928
  21. KEFLEX [Suspect]
     Active Substance: CEPHALEXIN
     Indication: PRODUCT USED FOR UNKNOWN INDICATION
     Dosage: 500 MG, QID
  22. PHENYTOIN. [Suspect]
     Active Substance: PHENYTOIN
     Indication: PRODUCT USED FOR UNKNOWN INDICATION
     Dosage: UNK, U
  23. MORPHINE SULFATE. [Suspect]
     Active Substance: MORPHINE SULFATE
     Dosage: 30 MG, PRN
  24. MORPHINE SULFATE. [Suspect]
     Active Substance: MORPHINE SULFATE
     Dosage: 100 MG, BID
  25. NORVASC [Suspect]
     Active Substance: AMLODIPINE BESYLATE
     Dosage: UNK, U
  26. CARVEDILOL. [Suspect]
     Active Substance: CARVEDILOL
     Indication: PRODUCT USED FOR UNKNOWN INDICATION
     Dosage: UNK, U

REACTIONS (87)
  - Urinary casts [Unknown]
  - Lumbar spinal stenosis [Unknown]
  - Blood albumin decreased [Unknown]
  - Staphylococcus test positive [Unknown]
  - Blood calcium decreased [Unknown]
  - Blood potassium decreased [Unknown]
  - Haematocrit decreased [Unknown]
  - Cellulitis [Unknown]
  - Abasia [Unknown]
  - Tremor [Unknown]
  - Implant site infection [Unknown]
  - Blood magnesium decreased [Unknown]
  - Headache [Unknown]
  - Arthritis bacterial [Unknown]
  - Throat irritation [Unknown]
  - Skin infection [Recovered/Resolved]
  - Wound infection staphylococcal [Unknown]
  - Blood glucose increased [Unknown]
  - Obesity [Unknown]
  - Soft tissue infection [Unknown]
  - Hypertensive crisis [Unknown]
  - Hypoaesthesia [Unknown]
  - Implant site pain [Unknown]
  - Implant site extravasation [Unknown]
  - Dehydration [Unknown]
  - Back pain [Recovering/Resolving]
  - Asthenia [Unknown]
  - Contusion [Unknown]
  - Respiratory rate increased [Unknown]
  - Neutrophil count increased [Unknown]
  - Haemoglobin decreased [Unknown]
  - Foreign body reaction [Unknown]
  - Extradural abscess [Unknown]
  - Wound dehiscence [Unknown]
  - Osteomyelitis [Unknown]
  - Neuropathy peripheral [Unknown]
  - Hypokalaemia [Unknown]
  - Myositis [Unknown]
  - Anaemia [Unknown]
  - Pain in extremity [Unknown]
  - Paraesthesia [Unknown]
  - Pyrexia [Recovered/Resolved]
  - Vomiting [Unknown]
  - Intervertebral disc degeneration [Unknown]
  - Nuclear magnetic resonance imaging abnormal [Unknown]
  - Electrocardiogram abnormal [Unknown]
  - Tooth fracture [Unknown]
  - Post procedural haemorrhage [Unknown]
  - Impaired gastric emptying [Unknown]
  - Influenza [Unknown]
  - Urinary tract infection [Unknown]
  - Hypovolaemia [Unknown]
  - Hyperpathia [Unknown]
  - Allodynia [Unknown]
  - Implant site abscess [Unknown]
  - No therapeutic response [Unknown]
  - Purulent discharge [Unknown]
  - Anxiety disorder [Unknown]
  - Red blood cell sedimentation rate increased [Unknown]
  - Mean cell volume decreased [Unknown]
  - Red blood cells urine positive [Unknown]
  - Cough [Unknown]
  - Feeling hot [Unknown]
  - Implant site hypersensitivity [Unknown]
  - Muscle spasms [Unknown]
  - Hypertension [Recovering/Resolving]
  - Seizure [Unknown]
  - Meningitis [Recovering/Resolving]
  - Insomnia [Unknown]
  - Left ventricular hypertrophy [Unknown]
  - Globulins increased [Unknown]
  - White blood cells urine positive [Unknown]
  - Muscular weakness [Unknown]
  - Pain [Recovering/Resolving]
  - Nausea [Recovering/Resolving]
  - Dry mouth [Unknown]
  - Hypertensive encephalopathy [Unknown]
  - C-reactive protein increased [Unknown]
  - Spinal osteoarthritis [Unknown]
  - Paralysis [Unknown]
  - Heart rate increased [Unknown]
  - Dyspnoea [Unknown]
  - Implant site discharge [Unknown]
  - Neuralgia [Unknown]
  - Implant site mass [Unknown]
  - Hyponatraemia [Unknown]
  - Malaise [Unknown]

NARRATIVE: CASE EVENT DATE: 20110928
